FAERS Safety Report 6810784-0 (Version None)
Quarter: 2010Q2

REPORT INFORMATION
  Report Type: 
  Country: None (occurrence: None)
  Receive Date: 20100630
  Receipt Date: 20080117
  Transmission Date: 20101027
  Serious: No
  Sender: FDA-Public Use
  Company Number: US-PFIZER INC-2008006757

PATIENT
  Sex: Female
  Weight: 59.09 kg

DRUGS (2)
  1. ESTRING [Suspect]
     Indication: VULVOVAGINAL DRYNESS
     Dates: start: 20071001, end: 20080117
  2. ESTRADIOL [Suspect]

REACTIONS (3)
  - HEADACHE [None]
  - NECK PAIN [None]
  - PRURITUS [None]
